FAERS Safety Report 8448960-6 (Version None)
Quarter: 2012Q2

REPORT INFORMATION
  Report Type: 
  Country: None (occurrence: None)
  Receive Date: 20120613
  Receipt Date: 20120606
  Transmission Date: 20120825
  Serious: Yes (Hospitalization, Other)
  Sender: FDA-Public Use
  Company Number: 2012060034

PATIENT
  Age: 46 Year
  Sex: Male

DRUGS (2)
  1. AZELASTINE [Suspect]
     Indication: NASOPHARYNGITIS
  2. NAPROXEN [Suspect]
     Indication: NASOPHARYNGITIS

REACTIONS (5)
  - OESOPHAGEAL MUCOSAL DISSECTION [None]
  - OESOPHAGEAL ULCER [None]
  - DYSPHAGIA [None]
  - ODYNOPHAGIA [None]
  - REGURGITATION [None]
